FAERS Safety Report 4863825-4 (Version None)
Quarter: 2005Q4

REPORT INFORMATION
  Report Type: 
  Country: None (occurrence: None)
  Receive Date: 20051222
  Receipt Date: 20050928
  Transmission Date: 20060501
  Serious: No
  Sender: FDA-Public Use
  Company Number: US-GLAXOSMITHKLINE-A0576250A

PATIENT
  Age: 70 Year
  Sex: Female

DRUGS (3)
  1. FLONASE [Suspect]
     Dosage: 2PUFF PER DAY
     Route: 045
     Dates: start: 20030101
  2. LISINOPRIL [Concomitant]
  3. METOPROLOL [Concomitant]

REACTIONS (2)
  - BLOOD PRESSURE INCREASED [None]
  - FLUSHING [None]
